FAERS Safety Report 21487195 (Version 1)
Quarter: 2022Q4

REPORT INFORMATION
  Report Type: Spontaneous
  Country: GR (occurrence: GR)
  Receive Date: 20221020
  Receipt Date: 20221020
  Transmission Date: 20230112
  Serious: No
  Sender: FDA-Public Use
  Company Number: GR-PFIZER INC-PV202200085591

PATIENT
  Age: 85 Year
  Sex: Male

DRUGS (5)
  1. PAXLOVID [Suspect]
     Active Substance: NIRMATRELVIR\RITONAVIR
     Indication: COVID-19 treatment
     Dosage: 3 DF (300 MG (2X150 MG) PAXLOVID WITH100 MG RITONAVIR), 2X/DAY
     Route: 048
  2. PAXLOVID [Suspect]
     Active Substance: NIRMATRELVIR\RITONAVIR
     Dosage: 1 DF, 2X/DAY (SOMETIMES HE WAS RECEIVING 2 TABLETS)
  3. LASIX [Concomitant]
     Active Substance: FUROSEMIDE
     Indication: Hypertension
  4. LANSOPRAZOLE [Concomitant]
     Active Substance: LANSOPRAZOLE
  5. HEPARIN [Concomitant]
     Active Substance: HEPARIN SODIUM

REACTIONS (2)
  - Blood creatinine increased [Unknown]
  - Incorrect dose administered [Unknown]
